FAERS Safety Report 8114418-7 (Version None)
Quarter: 2012Q1

REPORT INFORMATION
  Report Type: 
  Country: None (occurrence: None)
  Receive Date: 20120206
  Receipt Date: 20120127
  Transmission Date: 20120608
  Serious: No
  Sender: FDA-Public Use
  Company Number: US-BIOGENIDEC-2012BI003496

PATIENT
  Age: 51 Year
  Sex: Male

DRUGS (1)
  1. TYSABRI [Suspect]
     Indication: MULTIPLE SCLEROSIS
     Route: 042
     Dates: start: 20070328

REACTIONS (5)
  - DIABETES MELLITUS INADEQUATE CONTROL [None]
  - FRUSTRATION [None]
  - DIABETES MELLITUS [None]
  - POLLAKIURIA [None]
  - BLOOD GLUCOSE INCREASED [None]
